FAERS Safety Report 17457233 (Version 12)
Quarter: 2020Q3

REPORT INFORMATION
  Report Type: Report from Study
  Country: NL (occurrence: ES)
  Receive Date: 20200225
  Receipt Date: 20200817
  Transmission Date: 20201102
  Serious: Yes (Hospitalization, Other)
  Sender: FDA-Public Use
  Company Number: ES-ABBVIE-19K-144-2899055-00

PATIENT
  Age: 56 Year
  Sex: Male
  Weight: 64 kg

DRUGS (18)
  1. DUODOPA [Suspect]
     Active Substance: CARBIDOPA\LEVODOPA
     Dosage: CONTINUOUS DOSE OF DUODOPA INCREASED?CONTINUOUS RATE 3.5
     Route: 050
     Dates: start: 2019, end: 20191011
  2. DUODOPA [Suspect]
     Active Substance: CARBIDOPA\LEVODOPA
     Dosage: 16 HRS A DAY PUMP (3.5ML / H CD) AND FOR 8 HRS?NIGHT PUMP WITH A LOWER CD, 2.7ML / H
     Route: 050
     Dates: start: 20191011, end: 2020
  3. DUODOPA [Suspect]
     Active Substance: CARBIDOPA\LEVODOPA
     Dosage: CD DECREASED TO 3.5ML/H?DECREASED EXTRA DOSE TO 4?MORNING DOSE AT 5 ML (3+2)
     Route: 050
     Dates: start: 2020, end: 202004
  4. SINEMET [Concomitant]
     Active Substance: CARBIDOPA\LEVODOPA
     Indication: PRODUCT USED FOR UNKNOWN INDICATION
     Dosage: CHRONIC
     Route: 048
     Dates: end: 20190909
  5. STILNOX [Concomitant]
     Active Substance: ZOLPIDEM TARTRATE
     Indication: PRODUCT USED FOR UNKNOWN INDICATION
     Dosage: ONLY IF NECESSARY (IF IT IS UNCOVERED)
     Route: 048
     Dates: start: 20190910
  6. DUODOPA [Suspect]
     Active Substance: CARBIDOPA\LEVODOPA
     Dosage: CONTINUOUS DOSE DECREASED BY 0.2 ML.
     Route: 050
     Dates: start: 20190829, end: 2019
  7. COMTAN [Concomitant]
     Active Substance: ENTACAPONE
     Indication: PRODUCT USED FOR UNKNOWN INDICATION
     Dosage: TOGETHER MADOPAR
     Route: 048
     Dates: start: 20190910, end: 20191007
  8. OPICAPONE [Concomitant]
     Active Substance: OPICAPONE
     Indication: PRODUCT USED FOR UNKNOWN INDICATION
  9. ENZUDE [Concomitant]
     Active Substance: DESVENLAFAXINE SUCCINATE
     Indication: PRODUCT USED FOR UNKNOWN INDICATION
     Route: 048
     Dates: start: 20190729
  10. DUODOPA [Suspect]
     Active Substance: CARBIDOPA\LEVODOPA
     Dosage: CONTINUOUS DOSE DECREASE TO 3.7 ML/H
     Route: 050
     Dates: start: 20200316, end: 2020
  11. DUODOPA [Suspect]
     Active Substance: CARBIDOPA\LEVODOPA
     Dosage: CONTINUOUS DOSE 3.7ML/H?RESTARTED PUMP 24H
     Route: 050
     Dates: start: 202004
  12. DUODOPA [Suspect]
     Active Substance: CARBIDOPA\LEVODOPA
     Indication: PARKINSON^S DISEASE
     Dosage: 20 MG/ML 5 MG/ML
     Route: 050
     Dates: start: 20190718, end: 20190827
  13. DUODOPA [Suspect]
     Active Substance: CARBIDOPA\LEVODOPA
     Dosage: MORNING DOSE 5ML?CONTINUOUS DOSE 3.7ML?EXTRA DOSE 4.3ML
     Route: 050
     Dates: start: 2020, end: 202003
  14. DUODOPA [Suspect]
     Active Substance: CARBIDOPA\LEVODOPA
     Dosage: CONTINUOUS DOSE 4 ML/H
     Route: 050
     Dates: start: 202003, end: 20200316
  15. NEURONTIN [Concomitant]
     Active Substance: GABAPENTIN
     Indication: PRODUCT USED FOR UNKNOWN INDICATION
     Route: 048
     Dates: start: 20190910, end: 2019
  16. TRAZODONA [Concomitant]
     Active Substance: TRAZODONE HYDROCHLORIDE
     Indication: PRODUCT USED FOR UNKNOWN INDICATION
     Dosage: 100
     Route: 048
  17. DUODOPA [Suspect]
     Active Substance: CARBIDOPA\LEVODOPA
     Dosage: LOWERED THE CONTINUOUS DOSE BY 0.3 ML.
     Route: 050
     Dates: start: 20190827, end: 20190829
  18. MADOPAR [Concomitant]
     Active Substance: BENSERAZIDE HYDROCHLORIDE\LEVODOPA
     Indication: PRODUCT USED FOR UNKNOWN INDICATION
     Dosage: 200
     Route: 048
     Dates: start: 20190910

REACTIONS (33)
  - Musculoskeletal stiffness [Unknown]
  - Feeling abnormal [Unknown]
  - Pain in extremity [Recovering/Resolving]
  - Asthenia [Recovering/Resolving]
  - Aggression [Recovered/Resolved]
  - Therapeutic product effect delayed [Not Recovered/Not Resolved]
  - Drug ineffective [Recovered/Resolved]
  - Insomnia [Recovering/Resolving]
  - Hallucination [Recovered/Resolved]
  - Delirium [Recovering/Resolving]
  - Gaucher^s disease [Unknown]
  - Nervousness [Recovering/Resolving]
  - Aggression [Recovered/Resolved]
  - Disorientation [Not Recovered/Not Resolved]
  - On and off phenomenon [Not Recovered/Not Resolved]
  - Impaired self-care [Unknown]
  - Unevaluable event [Unknown]
  - Intentional product misuse [Unknown]
  - Anxiety [Recovering/Resolving]
  - Agitation [Recovering/Resolving]
  - Restless legs syndrome [Not Recovered/Not Resolved]
  - Aggression [Recovered/Resolved]
  - Intentional product misuse [Recovered/Resolved]
  - Pain [Unknown]
  - Aggression [Recovering/Resolving]
  - Nervousness [Recovered/Resolved]
  - Abnormal behaviour [Recovering/Resolving]
  - Movement disorder [Recovering/Resolving]
  - Nervousness [Recovered/Resolved]
  - Nervousness [Recovered/Resolved]
  - Insomnia [Recovered/Resolved]
  - Dyskinesia [Not Recovered/Not Resolved]
  - On and off phenomenon [Recovered/Resolved]

NARRATIVE: CASE EVENT DATE: 2019
